FAERS Safety Report 8488383-7 (Version None)
Quarter: 2012Q3

REPORT INFORMATION
  Report Type: 
  Country: None (occurrence: None)
  Receive Date: 20120705
  Receipt Date: 20120626
  Transmission Date: 20120928
  Serious: Yes (Hospitalization)
  Sender: FDA-Public Use
  Company Number: US-BAYER-2012-007506

PATIENT
  Age: 35 Year
  Sex: Female
  Weight: 75 kg

DRUGS (14)
  1. DROSPIRENONE AND ETHINYL ESTRADIOL [Suspect]
  2. PRILOSEC [Concomitant]
     Indication: GASTROOESOPHAGEAL REFLUX DISEASE
     Dosage: 20 MG, DAILY
     Route: 048
     Dates: start: 19990101, end: 20120101
  3. ALBUTEROL [Concomitant]
     Indication: DYSPNOEA
  4. YASMIN [Suspect]
     Dosage: UNK
     Dates: start: 20070701, end: 20080401
  5. ATIVAN [Concomitant]
  6. PHENERGAN HCL [Concomitant]
  7. ALBUTEROL [Concomitant]
     Indication: MULTIPLE ALLERGIES
     Dosage: 2 PUFFS, Q4HR, AS NEEDED
     Route: 045
     Dates: start: 20070101
  8. DROSPIRENONE AND ETHINYL ESTRADIOL [Suspect]
     Dosage: UNK, DAILY
     Route: 048
     Dates: start: 20091001, end: 20091101
  9. PERCOCET [Concomitant]
     Indication: PAIN MANAGEMENT
  10. YASMIN [Suspect]
  11. INTRAVENOUS FLUIDS [Concomitant]
  12. SINGULAIR [Concomitant]
     Indication: MULTIPLE ALLERGIES
     Dosage: 10 MG, HS, AS NEEDED
     Route: 048
     Dates: start: 20070101
  13. DILAUDID [Concomitant]
  14. PROTONIX [Concomitant]

REACTIONS (7)
  - CHOLECYSTECTOMY [None]
  - NAUSEA [None]
  - CHOLECYSTITIS ACUTE [None]
  - VOMITING [None]
  - EMOTIONAL DISTRESS [None]
  - INJURY [None]
  - ABDOMINAL PAIN UPPER [None]
